FAERS Safety Report 11146615 (Version 1)
Quarter: 2015Q2

REPORT INFORMATION
  Report Type: Spontaneous
  Country: US (occurrence: US)
  Receive Date: 20150528
  Receipt Date: 20150528
  Transmission Date: 20150821
  Serious: No
  Sender: FDA-Public Use
  Company Number: US-BAYER-2015-244706

PATIENT
  Age: 4 Year
  Sex: Male

DRUGS (2)
  1. SINGULAIR [Concomitant]
     Active Substance: MONTELUKAST SODIUM
     Dosage: UNK UNK, PRN
  2. CLARITIN [Suspect]
     Active Substance: LORATADINE

REACTIONS (6)
  - Abdominal discomfort [Unknown]
  - Pyrexia [Unknown]
  - Vomiting [Unknown]
  - Failure of child resistant mechanism for pharmaceutical product [None]
  - Accidental exposure to product by child [Unknown]
  - Infection [Unknown]

NARRATIVE: CASE EVENT DATE: 20150514
